FAERS Safety Report 21517287 (Version 1)
Quarter: 2022Q4

REPORT INFORMATION
  Report Type: Report from Study
  Country: US (occurrence: US)
  Receive Date: 20221028
  Receipt Date: 20221028
  Transmission Date: 20230112
  Serious: Yes (Hospitalization, Other)
  Sender: FDA-Public Use
  Company Number: US-ABBVIE-4173072

PATIENT
  Sex: Female

DRUGS (2)
  1. SKYRIZI [Suspect]
     Active Substance: RISANKIZUMAB-RZAA
     Indication: Psoriasis
     Route: 058
  2. Moderna [Concomitant]
     Indication: COVID-19 immunisation
     Dosage: FREQUENCY: 1 IN 1 ONCE
     Route: 030

REACTIONS (4)
  - Basosquamous carcinoma [Unknown]
  - Hospitalisation [Unknown]
  - Gait disturbance [Unknown]
  - Illness [Unknown]

NARRATIVE: CASE EVENT DATE: 20220101
